FAERS Safety Report 7313973-4 (Version None)
Quarter: 2011Q1

REPORT INFORMATION
  Report Type: 
  Country: None (occurrence: None)
  Receive Date: 20110225
  Receipt Date: 20110215
  Transmission Date: 20110831
  Serious: Yes (Other)
  Sender: FDA-Public Use
  Company Number: PHHY2011US12764

PATIENT

DRUGS (1)
  1. RECLAST [Suspect]
     Indication: OSTEOPOROSIS
     Dosage: 5 MG, ONCE YEARLY
     Route: 042
     Dates: start: 20110210

REACTIONS (9)
  - LYMPHADENOPATHY [None]
  - CHILLS [None]
  - BONE PAIN [None]
  - TREMOR [None]
  - PAIN [None]
  - LOSS OF CONSCIOUSNESS [None]
  - HEADACHE [None]
  - INSOMNIA [None]
  - BLOOD GLUCOSE INCREASED [None]
